FAERS Safety Report 9293414 (Version 4)
Quarter: 2013Q2

REPORT INFORMATION
  Report Type: Spontaneous
  Country: US (occurrence: US)
  Receive Date: 20130517
  Receipt Date: 20130626
  Transmission Date: 20140414
  Serious: No
  Sender: FDA-Public Use
  Company Number: US-009507513-1305USA009371

PATIENT
  Age: 34 Year
  Sex: Male
  Weight: 75.74 kg

DRUGS (7)
  1. PEGINTRON [Suspect]
     Indication: CHRONIC HEPATITIS C
     Dosage: 120 MICROGRAM, QW
     Dates: start: 20130419
  2. RIBASPHERE [Suspect]
     Indication: CHRONIC HEPATITIS C
     Dosage: 200 MG, UNK
     Dates: start: 20130419
  3. ADVAIR [Concomitant]
  4. SINGULAIR [Concomitant]
     Dosage: 10 MG, UNK
  5. OMEPRAZOLE [Concomitant]
     Dosage: 20 MG, UNK
  6. PROVENTIL [Concomitant]
     Dosage: 90 MICROGRAM, UNK
  7. ALEVE [Concomitant]

REACTIONS (12)
  - Weight decreased [Unknown]
  - Injection site reaction [Recovered/Resolved]
  - Chills [Unknown]
  - Pyrexia [Unknown]
  - Wrong technique in drug usage process [Unknown]
  - Influenza like illness [Unknown]
  - Pyrexia [Unknown]
  - Headache [Unknown]
  - Abdominal pain [Unknown]
  - Chills [Unknown]
  - Pyrexia [Unknown]
  - Headache [Unknown]
